FAERS Safety Report 18053989 (Version 1)
Quarter: 2020Q3

REPORT INFORMATION
  Report Type: Spontaneous
  Country: US (occurrence: US)
  Receive Date: 20200722
  Receipt Date: 20200722
  Transmission Date: 20201103
  Serious: No
  Sender: FDA-Public Use
  Company Number: US-PFIZER INC-2020278705

PATIENT

DRUGS (1)
  1. ALPRAZOLAM. [Suspect]
     Active Substance: ALPRAZOLAM
     Dosage: UNK, AS NEEDED

REACTIONS (1)
  - Drug ineffective [Unknown]
